FAERS Safety Report 5370156-5 (Version None)
Quarter: 2007Q2

REPORT INFORMATION
  Report Type: 
  Country: None (occurrence: None)
  Receive Date: 20070626
  Receipt Date: 20070619
  Transmission Date: 20071010
  Serious: Yes (Hospitalization)
  Sender: FDA-Public Use
  Company Number: US-ELI_LILLY_AND_COMPANY-US200706004262

PATIENT
  Age: 56 Year
  Sex: Female

DRUGS (3)
  1. BYETTA [Suspect]
     Dosage: UNK, UNKNOWN
  2. METFORMIN HCL [Concomitant]
  3. INSULIN [Concomitant]

REACTIONS (7)
  - ANGIOPLASTY [None]
  - BLOOD GLUCOSE INCREASED [None]
  - HEADACHE [None]
  - HEART DISEASE CONGENITAL [None]
  - MIGRAINE [None]
  - MOOD ALTERED [None]
  - WEIGHT DECREASED [None]
